FAERS Safety Report 20340202 (Version 2)
Quarter: 2022Q1

REPORT INFORMATION
  Report Type: Report from Study
  Country: MX (occurrence: MX)
  Receive Date: 20220117
  Receipt Date: 20220122
  Transmission Date: 20220424
  Serious: Yes (Other)
  Sender: FDA-Public Use
  Company Number: MX-BAYER-2021A228948

PATIENT

DRUGS (6)
  1. EYLEA [Suspect]
     Active Substance: AFLIBERCEPT
     Indication: Product used for unknown indication
     Dosage: 40 MG/ML; 2 MG, Q1MON
     Route: 031
     Dates: start: 20210108
  2. EYLEA [Suspect]
     Active Substance: AFLIBERCEPT
     Dosage: UNK
     Dates: start: 20210917
  3. EYLEA [Suspect]
     Active Substance: AFLIBERCEPT
     Dosage: UNK
     Dates: start: 20211119
  4. EYLEA [Suspect]
     Active Substance: AFLIBERCEPT
     Dosage: OS
     Dates: start: 20220107, end: 20220107
  5. CIPROFLOXACIN [Concomitant]
     Active Substance: CIPROFLOXACIN
     Indication: Product used for unknown indication
     Dosage: 2 DROP
  6. HYPROMELLOSES [Concomitant]
     Active Substance: HYPROMELLOSES
     Indication: Product used for unknown indication
     Dosage: UNK UNK, Q4HR

REACTIONS (4)
  - Blindness unilateral [Recovered/Resolved]
  - Eye discharge [Recovered/Resolved]
  - Abnormal sensation in eye [Recovered/Resolved]
  - Eye pain [Recovered/Resolved]

NARRATIVE: CASE EVENT DATE: 20211010
